FAERS Safety Report 6596655-6 (Version None)
Quarter: 2010Q1

REPORT INFORMATION
  Report Type: 
  Country: None (occurrence: None)
  Receive Date: 20100212
  Receipt Date: 20090902
  Transmission Date: 20100710
  Serious: No
  Sender: FDA-Public Use
  Company Number: 2009-00565

PATIENT
  Age: 56 Year
  Sex: Male
  Weight: 83.9154 kg

DRUGS (2)
  1. ZICAM COLD REMEDY NASAL GEL [Suspect]
     Dosage: QID, SPORADIC; SEVERAL YRS-MAR 2009
     Dates: start: 20090301
  2. ZICAM COLD REMEDY NASAL GEL [Suspect]
     Dosage: QID, SPORADIC; SEVERAL YRS-MAR 2009
     Dates: start: 20090301

REACTIONS (1)
  - ANOSMIA [None]
